FAERS Safety Report 23163076 (Version 3)
Quarter: 2024Q2

REPORT INFORMATION
  Report Type: Other
  Country: ID (occurrence: None)
  Receive Date: 20231109
  Receipt Date: 20240409
  Transmission Date: 20240716
  Serious: Yes (Death, Hospitalization)
  Sender: FDA-Public Use
  Company Number: ID-ROCHE-3450366

PATIENT
  Age: 54 Year
  Sex: Female

DRUGS (3)
  1. KADCYLA [Suspect]
     Active Substance: ADO-TRASTUZUMAB EMTANSINE
     Indication: Breast cancer metastatic
     Route: 065
  2. PERJETA [Suspect]
     Active Substance: PERTUZUMAB
     Indication: Breast cancer metastatic
     Route: 065
  3. HERCEPTIN [Suspect]
     Active Substance: TRASTUZUMAB
     Indication: Breast cancer metastatic
     Route: 041

REACTIONS (5)
  - Jaundice [Unknown]
  - Hepatic function abnormal [Unknown]
  - Hyperbilirubinaemia [Unknown]
  - Ascites [Unknown]
  - Death [Fatal]

NARRATIVE: CASE EVENT DATE: 20240331
